FAERS Safety Report 9374324 (Version 1)
Quarter: 2013Q2

REPORT INFORMATION
  Report Type: Spontaneous
  Country: US (occurrence: US)
  Receive Date: 20130628
  Receipt Date: 20130628
  Transmission Date: 20140414
  Serious: No
  Sender: FDA-Public Use
  Company Number: US-PFIZER INC-2013185148

PATIENT
  Age: 55 Year
  Sex: Female

DRUGS (2)
  1. LEVOXYL [Suspect]
     Indication: THYROIDECTOMY
     Dosage: UNK
     Dates: start: 2006
  2. LEVOXYL [Suspect]
     Indication: THYROID HORMONE REPLACEMENT THERAPY
     Dosage: 112MCG DAILY FOR FOUR DAYS IN A WEEK AND 100MCG DAILY FOR THE REMAINING THREE DAYS IN THE WEEK
     Dates: end: 20130602

REACTIONS (1)
  - Thyroid function test abnormal [Recovering/Resolving]
